FAERS Safety Report 11875641 (Version 1)
Quarter: 2015Q4

REPORT INFORMATION
  Report Type: Spontaneous
  Country: JP (occurrence: JP)
  Receive Date: 20151229
  Receipt Date: 20151229
  Transmission Date: 20160305
  Serious: Yes (Death, Other)
  Sender: FDA-Public Use
  Company Number: PHHY2015JP165923

PATIENT
  Age: 59 Year
  Sex: Male

DRUGS (6)
  1. ETODOLAC. [Suspect]
     Active Substance: ETODOLAC
     Indication: PAIN
     Dosage: 400 MG, UNK
     Route: 065
  2. FENTANYL. [Suspect]
     Active Substance: FENTANYL
     Indication: PAIN
     Dosage: 1.75 MG, UNK
     Route: 062
  3. DEXAMETHASONE. [Suspect]
     Active Substance: DEXAMETHASONE
     Indication: PAIN
     Dosage: 1 MG, UNK
     Route: 065
  4. METHADONE [Suspect]
     Active Substance: METHADONE HYDROCHLORIDE
     Dosage: 20 MG, QD
     Route: 048
  5. MORPHINE [Suspect]
     Active Substance: MORPHINE
     Indication: PAIN
     Route: 065
  6. METHADONE [Suspect]
     Active Substance: METHADONE HYDROCHLORIDE
     Indication: PAIN
     Dosage: 30 MG, QD
     Route: 048

REACTIONS (5)
  - Drug ineffective [Unknown]
  - Nausea [Unknown]
  - Somnolence [Unknown]
  - Death [Fatal]
  - Cellulitis [Recovered/Resolved]
